FAERS Safety Report 7071101-7 (Version None)
Quarter: 2010Q4

REPORT INFORMATION
  Report Type: 
  Country: None (occurrence: None)
  Receive Date: 20101021
  Receipt Date: 20101012
  Transmission Date: 20110411
  Serious: Yes (Hospitalization)
  Sender: FDA-Public Use
  Company Number: A0886453A

PATIENT
  Sex: Male

DRUGS (4)
  1. BENZOYL PEROXIDE FOAM (BENZOYL PEROXIDE) [Suspect]
     Indication: PRODUCT USED FOR UNKNOWN INDICATION
     Dosage: TOPICAL
     Route: 061
     Dates: start: 20101007, end: 20101011
  2. BENZOYL PEROXIDE FOAM (BENZOYL PEROXIDE) [Suspect]
     Indication: PRODUCT USED FOR UNKNOWN INDICATION
     Dosage: TOPICAL
     Route: 061
     Dates: start: 20101007, end: 20101011
  3. SALICYLI CACID (FORMULATION UNKNOWN) (SALICYLIC ACID) [Suspect]
     Indication: PRODUCT USED FOR UNKNOWN INDICATION
     Dosage: TOPICAL
     Route: 061
     Dates: start: 20101007, end: 20101011
  4. BENZOYL PEROXIDE FOAM (BENZOYL PEROXIDE) [Suspect]
     Indication: PRODUCT USED FOR UNKNOWN INDICATION
     Dosage: TOPICAL
     Route: 061
     Dates: start: 20101007, end: 20101011

REACTIONS (6)
  - BURNING SENSATION [None]
  - DRY SKIN [None]
  - ERYTHEMA [None]
  - PRURITUS [None]
  - SKIN IRRITATION [None]
  - SWELLING FACE [None]
